FAERS Safety Report 12812793 (Version 1)
Quarter: 2016Q4

REPORT INFORMATION
  Report Type: Spontaneous
  Country: US (occurrence: US)
  Receive Date: 20161005
  Receipt Date: 20161005
  Transmission Date: 20170207
  Serious: No
  Sender: FDA-Public Use
  Company Number: US-BRISTOL-MYERS SQUIBB COMPANY-BMS-2016-078876

PATIENT
  Age: 90 Year
  Sex: Female

DRUGS (1)
  1. OPDIVO [Suspect]
     Active Substance: NIVOLUMAB
     Indication: LUNG NEOPLASM MALIGNANT
     Dosage: UNK, Q2WK
     Route: 042
     Dates: start: 20160517

REACTIONS (6)
  - Skin disorder [Unknown]
  - Pruritus [Unknown]
  - Eye pruritus [Unknown]
  - Glossodynia [Unknown]
  - Blister [Unknown]
  - Nasopharyngitis [Unknown]
